FAERS Safety Report 7878796-6 (Version None)
Quarter: 2011Q4

REPORT INFORMATION
  Report Type: 
  Country: None (occurrence: None)
  Receive Date: 20111028
  Receipt Date: 20111017
  Transmission Date: 20120403
  Serious: Yes (Death)
  Sender: FDA-Public Use
  Company Number: TCI2011A02332

PATIENT
  Age: 62 Year
  Sex: Male

DRUGS (4)
  1. FAMOTIDINE [Concomitant]
  2. ACTOS [Suspect]
     Indication: TYPE 2 DIABETES MELLITUS
     Dosage: 15 MG (15 MG,1 D) PER ORAL
     Route: 048
     Dates: start: 20081212
  3. EPADEL-S (ETHYL ICOSAPENTATE) [Concomitant]
  4. BEZATOL SR (BEZAFIBRATE) [Concomitant]

REACTIONS (2)
  - SUDDEN DEATH [None]
  - ELECTROCARDIOGRAM ST-T CHANGE [None]
